FAERS Safety Report 13269194 (Version 1)
Quarter: 2017Q1

REPORT INFORMATION
  Report Type: Spontaneous
  Country: US (occurrence: US)
  Receive Date: 20170224
  Receipt Date: 20170224
  Transmission Date: 20170428
  Serious: Yes (Life-Threatening, Other)
  Sender: FDA-Public Use
  Company Number: US-PFIZER INC-2017075279

PATIENT
  Age: 28 Year
  Sex: Female

DRUGS (4)
  1. OXYTOCIN. [Concomitant]
     Active Substance: OXYTOCIN
     Indication: HYPERTENSION
  2. OXYTOCIN. [Concomitant]
     Active Substance: OXYTOCIN
     Indication: PRE-ECLAMPSIA
     Dosage: UNK
  3. MAGNESIUM SULFATE. [Suspect]
     Active Substance: MAGNESIUM SULFATE
     Dosage: 2 G/HR
     Route: 042
  4. MAGNESIUM SULFATE. [Suspect]
     Active Substance: MAGNESIUM SULFATE
     Indication: SEIZURE
     Dosage: 4 G, UNK
     Route: 042

REACTIONS (4)
  - Respiratory arrest [Recovering/Resolving]
  - Overdose [Recovering/Resolving]
  - Vomiting [Unknown]
  - Wound dehiscence [Recovering/Resolving]
